FAERS Safety Report 20726908 (Version 1)
Quarter: 2022Q2

REPORT INFORMATION
  Report Type: Spontaneous
  Country: US (occurrence: US)
  Receive Date: 20220419
  Receipt Date: 20220419
  Transmission Date: 20220721
  Serious: No
  Sender: FDA-Public Use
  Company Number: US-PFIZER INC-2019485808

PATIENT
  Age: 60 Year

DRUGS (1)
  1. CELEBREX [Suspect]
     Active Substance: CELECOXIB
     Dosage: 100 MG, DAILY (TAKE ONE CAPSULE DAILY WITH FOOD)

REACTIONS (4)
  - Diarrhoea [Unknown]
  - Malaise [Unknown]
  - Vomiting [Unknown]
  - Illness [Unknown]
